FAERS Safety Report 6453266-0 (Version None)
Quarter: 2009Q4

REPORT INFORMATION
  Report Type: 
  Country: None (occurrence: None)
  Receive Date: 20091124
  Receipt Date: 20091112
  Transmission Date: 20100525
  Serious: Yes (Hospitalization)
  Sender: FDA-Public Use
  Company Number: FR-AMGEN-US322025

PATIENT
  Sex: Female
  Weight: 40 kg

DRUGS (4)
  1. ENBREL [Suspect]
     Indication: JUVENILE ARTHRITIS
     Route: 058
     Dates: start: 20070401, end: 20081024
  2. ENBREL [Suspect]
     Indication: PSORIASIS
  3. METHOTREXATE [Suspect]
     Indication: JUVENILE ARTHRITIS
     Dosage: UNKNOWN
     Route: 048
     Dates: start: 20060101, end: 20070320
  4. METHOTREXATE [Suspect]
     Indication: PSORIASIS

REACTIONS (5)
  - ALVEOLITIS FIBROSING [None]
  - BRONCHIECTASIS [None]
  - DRUG INEFFECTIVE [None]
  - EMPHYSEMA [None]
  - INTERSTITIAL LUNG DISEASE [None]
